FAERS Safety Report 6146586-0 (Version None)
Quarter: 2009Q2

REPORT INFORMATION
  Report Type: 
  Country: None (occurrence: None)
  Receive Date: 20090407
  Receipt Date: 20090326
  Transmission Date: 20091009
  Serious: No
  Sender: FDA-Public Use
  Company Number: US-ELI_LILLY_AND_COMPANY-US200903006877

PATIENT
  Sex: Male

DRUGS (1)
  1. STRATTERA [Suspect]
     Dosage: 25 MG, UNKNOWN
     Route: 065
     Dates: start: 20090312

REACTIONS (5)
  - ABDOMINAL PAIN [None]
  - MYDRIASIS [None]
  - NAUSEA [None]
  - SKIN DISCOLOURATION [None]
  - VOMITING [None]
